FAERS Safety Report 7479938-7 (Version None)
Quarter: 2011Q2

REPORT INFORMATION
  Report Type: 
  Country: None (occurrence: None)
  Receive Date: 20110516
  Receipt Date: 20110504
  Transmission Date: 20111010
  Serious: Yes (Death)
  Sender: FDA-Public Use
  Company Number: US-BIOGENIDEC-2011BI015546

PATIENT
  Sex: Female

DRUGS (1)
  1. TYSABRI [Suspect]
     Indication: MULTIPLE SCLEROSIS
     Route: 042
     Dates: start: 20070402, end: 20080111

REACTIONS (4)
  - BRONCHITIS [None]
  - MULTIPLE SCLEROSIS [None]
  - DRUG INTOLERANCE [None]
  - ACUTE MYOCARDIAL INFARCTION [None]
